FAERS Safety Report 9537866 (Version 2)
Quarter: 2013Q3

REPORT INFORMATION
  Report Type: Report from Study
  Country: JP (occurrence: JP)
  Receive Date: 20130919
  Receipt Date: 20130919
  Transmission Date: 20140515
  Serious: Yes (Other)
  Sender: FDA-Public Use
  Company Number: JP-VERTEX PHARMACEUTICALS INC-AE-2012-004720

PATIENT
  Age: 60 Year
  Sex: Female

DRUGS (15)
  1. VX-950 (TELAPREVIR) [Suspect]
     Indication: HEPATITIS C
     Dosage: 1500 MG, QD
     Route: 048
     Dates: start: 20111216, end: 20120309
  2. REBETOL [Suspect]
     Indication: CHRONIC HEPATITIS C
     Dosage: 400 MG, QD
     Route: 048
     Dates: start: 20111216, end: 20111229
  3. REBETOL [Suspect]
     Dosage: 200 MG, QD
     Route: 048
     Dates: start: 20111230, end: 20120126
  4. REBETOL [Suspect]
     Dosage: 300 MG, QD
     Route: 048
     Dates: start: 20120127, end: 20120309
  5. REBETOL [Suspect]
     Dosage: 400 MG, QD
     Route: 048
     Dates: start: 20120310, end: 20120406
  6. REBETOL [Suspect]
     Dosage: 500 MG, QD
     Route: 048
     Dates: start: 20120407, end: 20120427
  7. REBETOL [Suspect]
     Dosage: 600 MG, QD
     Route: 048
     Dates: start: 20120428, end: 20120531
  8. PEGINTERFERON ALFA-2B [Suspect]
     Indication: CHRONIC HEPATITIS C
     Dosage: 1.5 ?G/KG, QW
     Route: 058
     Dates: start: 20111216, end: 20111222
  9. PEGINTERFERON ALFA-2B [Suspect]
     Dosage: 1.3 ?G/KG, QW
     Route: 058
     Dates: start: 20111223, end: 20120525
  10. THYRADIN S [Concomitant]
     Dosage: 62.5 ?G, QD
     Route: 048
     Dates: end: 20120427
  11. THYRADIN S [Concomitant]
     Dosage: 50 ?G, QD
     Route: 048
     Dates: start: 20120428
  12. XYZAL [Concomitant]
     Dosage: 5 MG, QD
     Route: 048
     Dates: start: 20111216, end: 20120531
  13. SELBEX [Concomitant]
     Dosage: 1.5 G, QD
     Route: 048
     Dates: start: 20111216, end: 20120531
  14. EVISTA [Concomitant]
     Dosage: 60 MG, QD
     Route: 048
     Dates: start: 20111218
  15. VIVIANT [Concomitant]
     Dosage: 20 MG, QD
     Route: 048
     Dates: start: 20120204, end: 20120531

REACTIONS (1)
  - Neutrophil count decreased [Not Recovered/Not Resolved]
